FAERS Safety Report 9915208 (Version 2)
Quarter: 2015Q4

REPORT INFORMATION
  Report Type: Report from Study
  Country: US (occurrence: US)
  Receive Date: 20140220
  Receipt Date: 20151013
  Transmission Date: 20160305
  Serious: Yes (Other)
  Sender: FDA-Public Use
  Company Number: US-ROCHE-1351451

PATIENT
  Sex: Male

DRUGS (2)
  1. LUCENTIS [Suspect]
     Active Substance: RANIBIZUMAB
     Route: 065
  2. LUCENTIS [Suspect]
     Active Substance: RANIBIZUMAB
     Indication: MACULAR DEGENERATION
     Dosage: LEFT EYE INJECTIONS, LAST DOSE RECEIVED  IN JAN/2014
     Route: 065
     Dates: end: 201401

REACTIONS (4)
  - Visual acuity reduced [Unknown]
  - Bone marrow failure [Unknown]
  - Anaemia [Unknown]
  - Vision blurred [Recovered/Resolved]
